FAERS Safety Report 15411894 (Version 1)
Quarter: 2018Q3

REPORT INFORMATION
  Report Type: Spontaneous
  Country: US (occurrence: US)
  Receive Date: 20180913
  Receipt Date: 20180913
  Transmission Date: 20181010
  Serious: Yes (Other)
  Sender: FDA-Public Use
  Company Number: None

PATIENT
  Age: 75 Year
  Sex: Male

DRUGS (7)
  1. ZYTIGA [Suspect]
     Active Substance: ABIRATERONE ACETATE
     Indication: PROSTATE CANCER
     Route: 048
     Dates: start: 20181006
  2. CALCIUM [Concomitant]
     Active Substance: CALCIUM
  3. TAXITERE [Concomitant]
  4. KORCO [Concomitant]
  5. MAGNEISUM [Concomitant]
  6. FIRMAGON [Concomitant]
     Active Substance: DEGARELIX ACETATE
  7. PREDNISONE. [Concomitant]
     Active Substance: PREDNISONE

REACTIONS (1)
  - Malignant neoplasm progression [None]
